FAERS Safety Report 10148784 (Version 2)
Quarter: 2014Q2

REPORT INFORMATION
  Report Type: Report from Study
  Country: JP (occurrence: JP)
  Receive Date: 20140502
  Receipt Date: 20140528
  Transmission Date: 20141212
  Serious: Yes (Hospitalization)
  Sender: FDA-Public Use
  Company Number: JP-ROCHE-1393090

PATIENT
  Age: 66 Year
  Sex: Female
  Weight: 72 kg

DRUGS (8)
  1. OMALIZUMAB [Suspect]
     Indication: ASTHMA
     Route: 058
     Dates: start: 20121121
  2. OMALIZUMAB [Suspect]
     Dosage: FOURTH SHOT OF OMALIZUMAB
     Route: 058
     Dates: start: 20120213
  3. OMALIZUMAB [Suspect]
     Dosage: FIFTH SHOT OF OMALIZUMAB
     Route: 058
     Dates: start: 20130410
  4. OMALIZUMAB [Suspect]
     Dosage: 12TH SHOT OF OMALIZUMAB
     Route: 058
     Dates: start: 20131023, end: 20131023
  5. ASMANEX [Concomitant]
     Route: 065
     Dates: start: 20120516
  6. FLUTIDE [Concomitant]
     Route: 065
     Dates: start: 20120516
  7. SINGULAIR [Concomitant]
     Route: 065
     Dates: start: 20120516
  8. UNICON [Concomitant]
     Route: 065
     Dates: start: 20120516

REACTIONS (1)
  - Pneumonia [Recovered/Resolved]
